FAERS Safety Report 9949985 (Version 1)
Quarter: 2014Q1

REPORT INFORMATION
  Report Type: Report from Study
  Country: US (occurrence: US)
  Receive Date: 20140304
  Receipt Date: 20140304
  Transmission Date: 20141002
  Serious: No
  Sender: FDA-Public Use
  Company Number: US-ABBVIE-13P-163-1065438-00

PATIENT
  Age: 66 Year
  Sex: Female

DRUGS (8)
  1. HUMIRA [Suspect]
     Indication: PSORIASIS
     Dates: start: 20121228, end: 20121228
  2. HUMIRA [Suspect]
     Dates: start: 20130104, end: 20130104
  3. HUMIRA [Suspect]
     Dates: start: 20130104
  4. HUMIRA [Suspect]
     Dates: start: 201303
  5. LISINOPRIL [Concomitant]
     Indication: HYPERTENSION
  6. METOPROLOL [Concomitant]
     Indication: HYPERTENSION
  7. GENERIC LIPITOR [Concomitant]
     Indication: BLOOD CHOLESTEROL INCREASED
     Dosage: AT BEDTIME
  8. TYLENOL PM [Concomitant]
     Indication: INSOMNIA
     Dosage: AT BEDTIME

REACTIONS (5)
  - Fatigue [Recovered/Resolved]
  - Dizziness [Recovered/Resolved]
  - Dizziness [Recovered/Resolved]
  - Vomiting [Recovered/Resolved]
  - Myalgia [Recovered/Resolved]
